FAERS Safety Report 5348120-1 (Version None)
Quarter: 2007Q2

REPORT INFORMATION
  Report Type: 
  Country: None (occurrence: None)
  Receive Date: 20070606
  Receipt Date: 20070530
  Transmission Date: 20071010
  Serious: Yes (Other)
  Sender: FDA-Public Use
  Company Number: NL-ROXANE LABORATORIES, INC-2007-BP-07231RO

PATIENT
  Age: 23 Year
  Sex: Female
  Weight: 58 kg

DRUGS (3)
  1. MERCAPTOPURINE [Suspect]
     Indication: CROHN'S DISEASE
  2. MESALAMINE [Suspect]
     Indication: CROHN'S DISEASE
     Route: 048
  3. PREDNISOLONE [Suspect]
     Indication: CROHN'S DISEASE
     Route: 048

REACTIONS (2)
  - PANCYTOPENIA [None]
  - PYREXIA [None]
